FAERS Safety Report 7321913-7 (Version None)
Quarter: 2011Q1

REPORT INFORMATION
  Report Type: 
  Country: None (occurrence: None)
  Receive Date: 20110228
  Receipt Date: 20110217
  Transmission Date: 20110831
  Serious: Yes (Other)
  Sender: FDA-Public Use
  Company Number: CH-BAXTER-2011BH004260

PATIENT
  Age: 4 Year
  Sex: Female
  Weight: 20 kg

DRUGS (4)
  1. ZOFRAN [Concomitant]
     Indication: PRODUCT USED FOR UNKNOWN INDICATION
     Route: 041
     Dates: start: 20110201
  2. MESNA [Concomitant]
     Indication: PRODUCT USED FOR UNKNOWN INDICATION
     Route: 040
     Dates: start: 20110201
  3. IFOSFAMIDE [Suspect]
     Indication: RHABDOMYOSARCOMA
     Route: 041
     Dates: start: 20110201, end: 20110205
  4. IFOSFAMIDE [Suspect]
     Indication: METASTASES TO LUNG
     Route: 041
     Dates: start: 20110201, end: 20110205

REACTIONS (5)
  - ENCEPHALOPATHY [None]
  - SOMNOLENCE [None]
  - TACHYCARDIA [None]
  - TACHYPNOEA [None]
  - VOMITING [None]
